FAERS Safety Report 8469746-2 (Version None)
Quarter: 2012Q2

REPORT INFORMATION
  Report Type: 
  Country: None (occurrence: None)
  Receive Date: 20120626
  Receipt Date: 20120622
  Transmission Date: 20120825
  Serious: Yes (Other)
  Sender: FDA-Public Use
  Company Number: US-PFIZER INC-2012150934

PATIENT
  Sex: Female
  Weight: 113.4 kg

DRUGS (3)
  1. LYRICA [Suspect]
     Indication: FIBROMYALGIA
     Dosage: 300 MG, 2X/DAY
  2. CYMBALTA [Concomitant]
     Indication: DEPRESSION
     Dosage: 50 MG, 2X/DAY
  3. XANAX [Concomitant]
     Indication: ANXIETY
     Dosage: 1 MG, 2X/DAY

REACTIONS (10)
  - PAIN [None]
  - MIGRAINE [None]
  - VITAMIN B12 DECREASED [None]
  - GAIT DISTURBANCE [None]
  - RASH [None]
  - INFLAMMATION [None]
  - DRUG INEFFECTIVE [None]
  - SERUM FERRITIN DECREASED [None]
  - BURNING SENSATION [None]
  - PARAESTHESIA [None]
